FAERS Safety Report 10358248 (Version 1)
Quarter: 2014Q3

REPORT INFORMATION
  Report Type: Spontaneous
  Country: US (occurrence: US)
  Receive Date: 20140801
  Receipt Date: 20140801
  Transmission Date: 20150326
  Serious: Yes (Hospitalization)
  Sender: FDA-Public Use
  Company Number: US-BAYER-2014-112906

PATIENT
  Sex: Female

DRUGS (2)
  1. ALEVE [Suspect]
     Active Substance: NAPROXEN SODIUM
     Dosage: 2 DF, UNK
  2. ADVIL [IBUPROFEN] [Interacting]
     Active Substance: IBUPROFEN

REACTIONS (5)
  - Gastric ulcer haemorrhage [None]
  - Gastric ulcer [None]
  - Gastric haemorrhage [None]
  - Labelled drug-drug interaction medication error [None]
  - Drug ineffective [None]
